FAERS Safety Report 9882354 (Version 2)
Quarter: 2014Q1

REPORT INFORMATION
  Report Type: Report from Study
  Country: US (occurrence: US)
  Receive Date: 20140207
  Receipt Date: 20140224
  Transmission Date: 20141002
  Serious: Yes (Hospitalization)
  Sender: FDA-Public Use
  Company Number: US-GLAXOSMITHKLINE-A1060066A

PATIENT
  Age: 36 Year
  Sex: Female

DRUGS (1)
  1. ELTROMBOPAG [Suspect]
     Indication: APLASTIC ANAEMIA
     Dates: start: 20130709

REACTIONS (1)
  - Colitis [Recovered/Resolved]
